FAERS Safety Report 11789980 (Version 2)
Quarter: 2015Q4

REPORT INFORMATION
  Report Type: Spontaneous
  Country: US (occurrence: US)
  Receive Date: 20151201
  Receipt Date: 20151210
  Transmission Date: 20160305
  Serious: No
  Sender: FDA-Public Use
  Company Number: US-BAYER-2015-471240

PATIENT
  Age: 60 Year
  Sex: Female

DRUGS (1)
  1. CLIMARA [Suspect]
     Active Substance: ESTRADIOL
     Dosage: 0.01 MG
     Route: 062

REACTIONS (4)
  - Skin irritation [Not Recovered/Not Resolved]
  - Erythema [Not Recovered/Not Resolved]
  - Product quality issue [None]
  - Pruritus [Recovered/Resolved]
